FAERS Safety Report 8457095-8 (Version None)
Quarter: 2012Q2

REPORT INFORMATION
  Report Type: 
  Country: None (occurrence: None)
  Receive Date: 20120615
  Receipt Date: 20120606
  Transmission Date: 20120825
  Serious: Yes (Other)
  Sender: FDA-Public Use
  Company Number: 1206-305

PATIENT

DRUGS (1)
  1. EYLEA [Suspect]
     Indication: AGE-RELATED MACULAR DEGENERATION
     Dosage: INTRAVITREAL

REACTIONS (4)
  - ENDOPHTHALMITIS [None]
  - VISUAL IMPAIRMENT [None]
  - UVEITIS [None]
  - VITREOUS DISORDER [None]
